FAERS Safety Report 9928193 (Version 1)
Quarter: 2014Q1

REPORT INFORMATION
  Report Type: Spontaneous
  Country: US (occurrence: None)
  Receive Date: 20140226
  Receipt Date: 20140226
  Transmission Date: 20141002
  Serious: Yes (Other)
  Sender: FDA-Public Use
  Company Number: None

PATIENT
  Age: 62 Year
  Sex: Male
  Weight: 74.84 kg

DRUGS (1)
  1. CIPROFLOXACIN 500 MG COBALT [Suspect]
     Indication: EPIDIDYMITIS
     Dosage: 500 MG/20 PILLS ?TWICE DAILY ?TAKEN BY MOUTH
     Route: 048
     Dates: start: 20140214, end: 20140214

REACTIONS (9)
  - Paraesthesia [None]
  - Insomnia [None]
  - Myalgia [None]
  - Limb discomfort [None]
  - Paraesthesia [None]
  - Joint crepitation [None]
  - Hypoaesthesia [None]
  - Chest pain [None]
  - Middle insomnia [None]
